FAERS Safety Report 7527476-5 (Version None)
Quarter: 2011Q2

REPORT INFORMATION
  Report Type: 
  Country: None (occurrence: None)
  Receive Date: 20110607
  Receipt Date: 20110530
  Transmission Date: 20111010
  Serious: Yes (Other)
  Sender: FDA-Public Use
  Company Number: JP-JNJFOC-20110601797

PATIENT

DRUGS (1)
  1. ITRACONAZOLE [Suspect]
     Indication: PNEUMONIA
     Route: 048

REACTIONS (3)
  - CARDIAC FAILURE CONGESTIVE [None]
  - BLINDNESS [None]
  - VISUAL IMPAIRMENT [None]
